FAERS Safety Report 6023899-4 (Version None)
Quarter: 2008Q4

REPORT INFORMATION
  Report Type: 
  Country: None (occurrence: None)
  Receive Date: 20081230
  Receipt Date: 20081223
  Transmission Date: 20090506
  Serious: Yes (Death, Hospitalization)
  Sender: FDA-Public Use
  Company Number: NL-PFIZER INC-2008096820

PATIENT

DRUGS (1)
  1. SULFASALAZINE [Suspect]
     Dosage: UNK
     Route: 054

REACTIONS (2)
  - DEATH [None]
  - SEPSIS [None]
